FAERS Safety Report 9220840 (Version 1)
Quarter: 2013Q2

REPORT INFORMATION
  Report Type: Spontaneous
  Country: US (occurrence: US)
  Receive Date: 20130409
  Receipt Date: 20130409
  Transmission Date: 20140414
  Serious: Yes (Hospitalization)
  Sender: FDA-Public Use
  Company Number: US-GLAXOSMITHKLINE-A0793926A

PATIENT
  Age: 75 Year
  Sex: Male

DRUGS (1)
  1. ROSIGLITAZONE MALEATE [Suspect]
     Indication: DIABETES MELLITUS
     Dosage: 8MG PER DAY
     Route: 048
     Dates: start: 20020930, end: 20071212

REACTIONS (5)
  - Myocardial infarction [Not Recovered/Not Resolved]
  - Local swelling [Unknown]
  - Swelling [Unknown]
  - Ill-defined disorder [Unknown]
  - Memory impairment [Unknown]
